FAERS Safety Report 7912010-8 (Version None)
Quarter: 2011Q4

REPORT INFORMATION
  Report Type: 
  Country: None (occurrence: None)
  Receive Date: 20111114
  Receipt Date: 20111111
  Transmission Date: 20120403
  Serious: Yes (Death)
  Sender: FDA-Public Use
  Company Number: JP-BAYER-2011-042589

PATIENT
  Age: 57 Year
  Sex: Male

DRUGS (2)
  1. NEXAVAR [Suspect]
     Indication: HEPATIC NEOPLASM MALIGNANT
     Dosage: DAILY DOSE 800 MG
     Route: 048
     Dates: start: 20110511
  2. NEXAVAR [Suspect]
     Dosage: 200 MG DAILY

REACTIONS (5)
  - MALAISE [None]
  - DIARRHOEA [None]
  - HEPATIC NEOPLASM MALIGNANT [None]
  - PALMAR-PLANTAR ERYTHRODYSAESTHESIA SYNDROME [None]
  - HEPATIC FAILURE [None]
